FAERS Safety Report 13884397 (Version 2)
Quarter: 2017Q3

REPORT INFORMATION
  Report Type: Spontaneous
  Country: US (occurrence: US)
  Receive Date: 20170821
  Receipt Date: 20170821
  Transmission Date: 20171127
  Serious: No
  Sender: FDA-Public Use
  Company Number: US-CIPLA LTD.-2016US19820

PATIENT

DRUGS (3)
  1. TERBINAFINE. [Suspect]
     Active Substance: TERBINAFINE
     Indication: FUNGAL INFECTION
     Dosage: 250 MG, UNK
     Route: 048
     Dates: start: 20161011
  2. KETOCONAZOLE. [Interacting]
     Active Substance: KETOCONAZOLE
     Indication: FUNGAL INFECTION
     Dosage: 2 %, UNK
     Route: 065
  3. TINACTIN [Interacting]
     Active Substance: TOLNAFTATE
     Indication: FUNGAL INFECTION
     Dosage: UNK
     Route: 065

REACTIONS (3)
  - Peripheral swelling [Not Recovered/Not Resolved]
  - Rash macular [Not Recovered/Not Resolved]
  - Drug interaction [Unknown]

NARRATIVE: CASE EVENT DATE: 20161014
